FAERS Safety Report 8445487-2 (Version None)
Quarter: 2012Q2

REPORT INFORMATION
  Report Type: 
  Country: None (occurrence: None)
  Receive Date: 20120618
  Receipt Date: 20120608
  Transmission Date: 20120825
  Serious: Yes (Hospitalization, Other)
  Sender: FDA-Public Use
  Company Number: JP-JNJFOC-20120601876

PATIENT
  Sex: Male
  Weight: 69 kg

DRUGS (9)
  1. MICONAZOLE [Suspect]
     Indication: OESOPHAGEAL CANDIDIASIS
     Dosage: 10 G A DAY
     Route: 049
     Dates: start: 20120514, end: 20120528
  2. DECADRON [Concomitant]
     Indication: PROSTATE CANCER
     Dosage: 0.5 MG ONE TIME DOSE
     Route: 048
     Dates: start: 20110930
  3. AMOBAN [Concomitant]
     Indication: INSOMNIA
     Route: 048
  4. CEROCRAL [Concomitant]
     Indication: CEREBRAL INFARCTION
     Dosage: 20 MG ONE TIME DOSE
     Route: 048
  5. BACLOFEN [Concomitant]
     Indication: CEREBRAL INFARCTION
     Dosage: 5 MG ONE TIME DOSE
     Route: 048
  6. CANDESARTAN CILEXETIL [Concomitant]
     Indication: HYPERTENSION
     Route: 048
  7. WARFARIN SODIUM [Interacting]
     Indication: DEEP VEIN THROMBOSIS
     Route: 048
     Dates: start: 20091004, end: 20120531
  8. FAMOTIDINE [Concomitant]
     Indication: GASTRITIS
     Dosage: 10 MG ONE TIME DOSE
     Route: 048
  9. MICONAZOLE [Suspect]
     Route: 049

REACTIONS (5)
  - MELAENA [None]
  - SMALL INTESTINAL ULCER HAEMORRHAGE [None]
  - INTERNATIONAL NORMALISED RATIO INCREASED [None]
  - HAEMORRHAGIC ANAEMIA [None]
  - DRUG INTERACTION [None]
